FAERS Safety Report 8554014-0 (Version None)
Quarter: 2012Q3

REPORT INFORMATION
  Report Type: 
  Country: None (occurrence: None)
  Receive Date: 20120731
  Receipt Date: 20120716
  Transmission Date: 20120928
  Serious: No
  Sender: FDA-Public Use
  Company Number: US-ASTRAZENECA-2011SE18318

PATIENT
  Age: 57 Year
  Sex: Female
  Weight: 79.4 kg

DRUGS (5)
  1. SEROQUEL [Suspect]
     Indication: BIPOLAR DISORDER
     Route: 048
  2. LAMOTRIGINE [Concomitant]
     Indication: ANXIETY
  3. DIAZEPAM [Concomitant]
     Indication: ANXIETY
  4. BACLOFEN [Concomitant]
     Indication: MUSCULOSKELETAL DISCOMFORT
  5. LEVOTHYROXINE SODIUM [Concomitant]
     Indication: THYROID DISORDER

REACTIONS (3)
  - INSOMNIA [None]
  - DRUG DOSE OMISSION [None]
  - MEMORY IMPAIRMENT [None]
